FAERS Safety Report 14521716 (Version 1)
Quarter: 2018Q1

REPORT INFORMATION
  Report Type: Spontaneous
  Country: US (occurrence: US)
  Receive Date: 20180212
  Receipt Date: 20180212
  Transmission Date: 20180509
  Serious: Yes (Other)
  Sender: FDA-Public Use
  Company Number: US-MYLANLABS-2018M1008981

PATIENT
  Age: 30 Year
  Sex: Female
  Weight: 51 kg

DRUGS (2)
  1. METOPROLOL. [Suspect]
     Active Substance: METOPROLOL
     Indication: ARRHYTHMIA
     Dosage: 0.5 DF, AM
     Route: 048
     Dates: start: 20170928, end: 20171001
  2. METOPROLOL. [Suspect]
     Active Substance: METOPROLOL
     Dosage: 0.5 DF, PM
     Route: 048
     Dates: start: 20170928, end: 20171001

REACTIONS (5)
  - Therapeutic response shortened [Unknown]
  - Heart rate abnormal [Recovered/Resolved]
  - Loss of consciousness [Recovered/Resolved]
  - Cardiac flutter [Unknown]
  - Fatigue [Recovered/Resolved]

NARRATIVE: CASE EVENT DATE: 20170928
